FAERS Safety Report 7949831-1 (Version None)
Quarter: 2011Q4

REPORT INFORMATION
  Report Type: 
  Country: None (occurrence: None)
  Receive Date: 20111130
  Receipt Date: 20111126
  Transmission Date: 20120403
  Serious: Yes (Other)
  Sender: FDA-Public Use
  Company Number: US-CEPHALON-US008689

PATIENT
  Age: 50 Year
  Sex: Male

DRUGS (2)
  1. TEGRETOL [Concomitant]
  2. GABITRIL [Suspect]
     Indication: CONVULSION
     Route: 048
     Dates: start: 19980301

REACTIONS (1)
  - MYOCARDIAL INFARCTION [None]
